FAERS Safety Report 5337026-X (Version None)
Quarter: 2007Q2

REPORT INFORMATION
  Report Type: 
  Country: None (occurrence: None)
  Receive Date: 20070523
  Receipt Date: 20070511
  Transmission Date: 20071010
  Serious: Yes (Hospitalization)
  Sender: FDA-Public Use
  Company Number: 6033203

PATIENT
  Age: 82 Year
  Sex: Female

DRUGS (6)
  1. LEVOTHYROXINE SODIUM [Suspect]
     Indication: HYPOTHYROIDISM
     Dosage: 150 MCG (150 MCG, 1 D) ORAL
     Route: 048
  2. DIAMICRON(TABLET) (GLICLAZIDE) [Concomitant]
  3. FLUDEX(TABLET) (INDAPAMIDE) [Concomitant]
  4. TRIMETAZIDINE(TRIMETAZIDINE) [Concomitant]
  5. ATORVASTATIN CALCIUM [Concomitant]
  6. PREVISCAN(20 MG, TABLET) (FLUINDIONE) [Concomitant]

REACTIONS (9)
  - ASTHENIA [None]
  - BLOOD PRESSURE SYSTOLIC INCREASED [None]
  - BLOOD THYROID STIMULATING HORMONE DECREASED [None]
  - DRUG TOXICITY [None]
  - DYSPNOEA [None]
  - GENERAL PHYSICAL CONDITION ABNORMAL [None]
  - OXYGEN SATURATION DECREASED [None]
  - RALES [None]
  - TACHYCARDIA [None]
